FAERS Safety Report 5740463 (Version 2)
Quarter: 2020Q3

REPORT INFORMATION
  Report Type: Report from Study
  Country: US (occurrence: US)
  Receive Date: 20050217
  Receipt Date: 20060420
  Transmission Date: 20201105
  Serious: Yes (Other)
  Sender: FDA-Public Use
  Company Number: US-JNJFOC-20050200957

PATIENT
  Age: 41 Year
  Sex: Female

DRUGS (14)
  1. INFLIXIMAB [Suspect]
     Active Substance: INFLIXIMAB
     Route: 042
  2. COLOSTRUM HUMAN [Concomitant]
     Active Substance: HUMAN COLOSTRUM
  3. INFLIXIMAB [Suspect]
     Active Substance: INFLIXIMAB
     Route: 042
  4. CYANOCOBALAMIN. [Concomitant]
     Active Substance: CYANOCOBALAMIN
  5. INFLIXIMAB [Suspect]
     Active Substance: INFLIXIMAB
     Route: 042
  6. HEMOCYTE?F ELIXIR [Concomitant]
  7. CETIRIZINE [Concomitant]
     Active Substance: CETIRIZINE HYDROCHLORIDE
  8. CALCIUM GLUCONATE. [Concomitant]
     Active Substance: CALCIUM GLUCONATE
  9. TOCOPHEROL [Concomitant]
     Active Substance: TOCOPHEROL
  10. INFLIXIMAB [Suspect]
     Active Substance: INFLIXIMAB
     Route: 042
  11. INFLIXIMAB [Suspect]
     Active Substance: INFLIXIMAB
     Route: 042
  12. PREDNISONE. [Concomitant]
     Active Substance: PREDNISONE
  13. BALSALAZIDE [Concomitant]
  14. FOLIC ACID. [Concomitant]
     Active Substance: FOLIC ACID

REACTIONS (3)
  - Herpes zoster [Recovered/Resolved]
  - Post herpetic neuralgia [Recovered/Resolved]
  - Lupus-like syndrome [Unknown]

NARRATIVE: CASE EVENT DATE: 20031025
